FAERS Safety Report 6520528-8 (Version None)
Quarter: 2009Q4

REPORT INFORMATION
  Report Type: 
  Country: None (occurrence: None)
  Receive Date: 20091229
  Receipt Date: 20091216
  Transmission Date: 20100525
  Serious: Yes (Death)
  Sender: FDA-Public Use
  Company Number: B0620044A

PATIENT
  Sex: Female

DRUGS (10)
  1. ATARAX [Suspect]
     Indication: DRUG USE FOR UNKNOWN INDICATION
     Dosage: 12.5MG FOUR TIMES PER DAY
     Route: 048
     Dates: end: 20091102
  2. SORIATANE [Suspect]
     Indication: DRUG USE FOR UNKNOWN INDICATION
     Dosage: 25MG FOUR TIMES PER DAY
     Route: 048
     Dates: start: 20091027, end: 20091102
  3. PLAVIX [Suspect]
     Indication: DRUG USE FOR UNKNOWN INDICATION
     Dosage: 75MG FOUR TIMES PER DAY
     Route: 048
     Dates: end: 20091105
  4. EUPRESSYL [Suspect]
     Indication: DRUG USE FOR UNKNOWN INDICATION
     Dosage: 30MG FOUR TIMES PER DAY
     Route: 048
     Dates: end: 20091025
  5. DAFALGAN [Suspect]
     Indication: DRUG USE FOR UNKNOWN INDICATION
     Dosage: 2G UNKNOWN
     Route: 048
     Dates: start: 20091027, end: 20091102
  6. ACTISKENAN [Suspect]
     Indication: DRUG USE FOR UNKNOWN INDICATION
     Dosage: 30MG UNKNOWN
     Route: 048
     Dates: start: 20091030, end: 20091103
  7. AERIUS [Concomitant]
     Route: 065
  8. DIPROSONE [Concomitant]
     Route: 065
  9. DIPROBASE [Concomitant]
     Route: 065
  10. VASELINE [Concomitant]
     Route: 065

REACTIONS (8)
  - ACUTE HEPATIC FAILURE [None]
  - DECREASED APPETITE [None]
  - HYPERGLYCAEMIA [None]
  - HYPERKALAEMIA [None]
  - MULTI-ORGAN FAILURE [None]
  - PSORIASIS [None]
  - RENAL FAILURE [None]
  - THROMBOCYTOPENIA [None]
